FAERS Safety Report 24800317 (Version 1)
Quarter: 2025Q1

REPORT INFORMATION
  Report Type: Spontaneous
  Country: US (occurrence: US)
  Receive Date: 20250102
  Receipt Date: 20250102
  Transmission Date: 20250409
  Serious: Yes (Other)
  Sender: SPECGX
  Company Number: US-SPECGX-T202402461

PATIENT
  Age: 37 Year
  Sex: Male

DRUGS (1)
  1. METHADONE [Suspect]
     Active Substance: METHADONE HYDROCHLORIDE
     Indication: Drug abuse
     Route: 065

REACTIONS (9)
  - Hypogammaglobulinaemia [Unknown]
  - Pancytopenia [Unknown]
  - Liver sarcoidosis [Unknown]
  - Hepatitis B [Recovered/Resolved]
  - Pulmonary mass [Unknown]
  - Leukopenia [Unknown]
  - Diabetic gastroparesis [Unknown]
  - Hepatic steatosis [Unknown]
  - Splenomegaly [Unknown]
